FAERS Safety Report 8454118-7 (Version None)
Quarter: 2012Q2

REPORT INFORMATION
  Report Type: 
  Country: None (occurrence: None)
  Receive Date: 20120620
  Receipt Date: 20120615
  Transmission Date: 20120825
  Serious: No
  Sender: FDA-Public Use
  Company Number: US-PFIZER INC-2012145074

PATIENT
  Sex: Female

DRUGS (1)
  1. PREMPRO [Suspect]
     Dosage: UNK

REACTIONS (5)
  - DEPRESSION [None]
  - ANXIETY [None]
  - EATING DISORDER [None]
  - IRRITABILITY [None]
  - FATIGUE [None]
